FAERS Safety Report 7440611-2 (Version None)
Quarter: 2011Q2

REPORT INFORMATION
  Report Type: 
  Country: None (occurrence: None)
  Receive Date: 20110427
  Receipt Date: 20110419
  Transmission Date: 20111010
  Serious: Yes (Hospitalization)
  Sender: FDA-Public Use
  Company Number: B0714906A

PATIENT
  Sex: Female
  Weight: 60 kg

DRUGS (16)
  1. PYDOXAL [Concomitant]
     Route: 048
  2. DIOVAN [Concomitant]
     Indication: HYPERTENSION
     Route: 048
  3. MYSLEE [Concomitant]
     Indication: INSOMNIA
     Route: 048
  4. CRAVIT [Concomitant]
     Route: 048
     Dates: start: 20100329, end: 20100515
  5. GLUCOBAY [Concomitant]
     Indication: DIABETES MELLITUS
     Route: 048
  6. GLUFAST [Concomitant]
     Indication: DIABETES MELLITUS
     Route: 048
     Dates: end: 20100316
  7. AMLODIN [Concomitant]
     Indication: HYPERTENSION
     Route: 048
  8. MUCOSTA [Concomitant]
     Indication: ADVERSE REACTION
     Route: 048
  9. OXYCONTIN [Concomitant]
     Indication: CANCER PAIN
     Route: 048
     Dates: start: 20100526
  10. TYKERB [Suspect]
     Indication: BREAST CANCER
     Dosage: 1250MG PER DAY
     Route: 048
     Dates: start: 20091221, end: 20100609
  11. GLYCYRON [Concomitant]
     Indication: LIVER DISORDER
     Route: 048
  12. XELODA [Concomitant]
     Dosage: 2400MG PER DAY
     Route: 048
     Dates: start: 20090225, end: 20100609
  13. CEFOPERAZONE SODIUM [Concomitant]
     Indication: BILE DUCT STENOSIS
     Dates: start: 20091222, end: 20091231
  14. LOXONIN [Concomitant]
     Indication: CANCER PAIN
     Route: 048
  15. CRAVIT [Concomitant]
     Indication: BILE DUCT STENOSIS
     Route: 048
     Dates: start: 20100101, end: 20100105
  16. CEROCRAL [Concomitant]
     Route: 048
     Dates: start: 20100318

REACTIONS (1)
  - PLEURAL EFFUSION [None]
